FAERS Safety Report 9812090 (Version 1)
Quarter: 2014Q1

REPORT INFORMATION
  Report Type: Spontaneous
  Country: BR (occurrence: BR)
  Receive Date: 20140111
  Receipt Date: 20140111
  Transmission Date: 20141002
  Serious: Yes (Hospitalization)
  Sender: FDA-Public Use
  Company Number: BR-ASTRAZENECA-2014SE00365

PATIENT
  Age: 24333 Day
  Sex: Male
  Weight: 113 kg

DRUGS (5)
  1. NEXIUM [Suspect]
     Indication: GASTRITIS
     Route: 048
     Dates: start: 2008
  2. PLAVIX [Suspect]
     Indication: CARDIAC FAILURE
     Dosage: UNKNOWN, DAILY
     Route: 048
     Dates: start: 20131221
  3. RASILEZ [Concomitant]
     Indication: HYPERTENSION
     Dosage: UNKNOWN, DAILY
     Route: 048
  4. PRESSAT [Concomitant]
     Indication: HYPERTENSION
     Dosage: UNKNOWN, DAILY
     Route: 048
  5. INSULINA LANTUS [Concomitant]
     Indication: DIABETES MELLITUS
     Route: 058

REACTIONS (3)
  - Cardiac failure [Recovered/Resolved]
  - Respiratory failure [Recovered/Resolved]
  - Abdominal pain upper [Recovering/Resolving]
